FAERS Safety Report 6863748-5 (Version None)
Quarter: 2010Q3

REPORT INFORMATION
  Report Type: 
  Country: None (occurrence: None)
  Receive Date: 20100721
  Receipt Date: 20080424
  Transmission Date: 20110219
  Serious: Yes (Other)
  Sender: FDA-Public Use
  Company Number: US-PFIZER INC-2008022796

PATIENT
  Sex: Female
  Weight: 77.1 kg

DRUGS (6)
  1. CHANTIX [Suspect]
     Indication: SMOKING CESSATION THERAPY
     Route: 048
     Dates: start: 20080212, end: 20080301
  2. GLYBURIDE [Concomitant]
     Indication: DIABETES MELLITUS
  3. LIPITOR [Concomitant]
     Indication: BLOOD CHOLESTEROL ABNORMAL
  4. ACETYLSALICYLIC ACID [Concomitant]
  5. ALL OTHER THERAPEUTIC PRODUCTS [Concomitant]
  6. ALLERGY MEDICATION [Concomitant]

REACTIONS (8)
  - DRUG INEFFECTIVE [None]
  - EAR PAIN [None]
  - HEADACHE [None]
  - ILL-DEFINED DISORDER [None]
  - LACRIMATION INCREASED [None]
  - MIGRAINE [None]
  - PRURITUS [None]
  - RASH [None]
